FAERS Safety Report 10179155 (Version 1)
Quarter: 2014Q2

REPORT INFORMATION
  Report Type: Report from Study
  Country: TN (occurrence: TN)
  Receive Date: 20140519
  Receipt Date: 20140519
  Transmission Date: 20141212
  Serious: Yes (Death, Other)
  Sender: FDA-Public Use
  Company Number: TN-SA-2014SA060736

PATIENT
  Age: 81 Year
  Sex: Male

DRUGS (5)
  1. CLOPIDOGREL BISULFATE [Suspect]
     Indication: CORONARY ARTERIAL STENT INSERTION
     Dosage: DOSE AND FREQUENCY_75/D
     Route: 048
     Dates: start: 20131221, end: 20140221
  2. ASPIRINE [Concomitant]
     Route: 048
     Dates: end: 20140221
  3. TRIATEC [Concomitant]
     Route: 048
     Dates: end: 20140221
  4. LASILIX [Concomitant]
     Route: 048
     Dates: end: 20140221
  5. ATOR [Concomitant]
     Route: 048
     Dates: end: 20140221

REACTIONS (6)
  - Cardiac arrest [Fatal]
  - Cardiac failure [Unknown]
  - Dyspnoea [Unknown]
  - Coronary artery stenosis [Unknown]
  - Drug ineffective [Unknown]
  - Chest pain [Unknown]
